FAERS Safety Report 6603189-9 (Version None)
Quarter: 2010Q1

REPORT INFORMATION
  Report Type: 
  Country: None (occurrence: None)
  Receive Date: 20100226
  Receipt Date: 20100216
  Transmission Date: 20100710
  Serious: No
  Sender: FDA-Public Use
  Company Number: US-B.I. PHARMACEUTICALS,INC./RIDGEFIELD-2007-BP-18773BP

PATIENT
  Age: 63 Year
  Sex: Female

DRUGS (13)
  1. SPIRIVA [Suspect]
     Indication: CHRONIC OBSTRUCTIVE PULMONARY DISEASE
     Dosage: 18 MCG
     Route: 055
     Dates: start: 20050101, end: 20080101
  2. ADVAIR DISKUS 100/50 [Concomitant]
  3. DUONEB [Concomitant]
  4. ALBUTEROL [Concomitant]
  5. PREDNISONE [Concomitant]
  6. THEOPHYLLINE [Concomitant]
  7. SINGULAIR [Concomitant]
  8. DIPRIDIMOLE [Concomitant]
  9. ALTACE [Concomitant]
  10. BUSPAR [Concomitant]
  11. XANAX [Concomitant]
  12. OXYGEN [Concomitant]
  13. DEMADEX [Concomitant]
     Dosage: 20 MG
     Route: 048

REACTIONS (1)
  - OEDEMA PERIPHERAL [None]
